FAERS Safety Report 19178644 (Version 1)
Quarter: 2021Q2

REPORT INFORMATION
  Report Type: Spontaneous
  Country: DE (occurrence: DE)
  Receive Date: 20210426
  Receipt Date: 20210426
  Transmission Date: 20210717
  Serious: Yes (Death)
  Sender: FDA-Public Use
  Company Number: DE-009507513-2104DEU005574

PATIENT
  Age: 8 Decade
  Sex: Male

DRUGS (2)
  1. PEMBROLIZUMAB. [Suspect]
     Active Substance: PEMBROLIZUMAB
     Indication: CLEAR CELL RENAL CELL CARCINOMA
     Dosage: 400 MG, EVERY 3 WEEKS
     Dates: start: 20200813
  2. AXITINIB [Suspect]
     Active Substance: AXITINIB
     Indication: CLEAR CELL RENAL CELL CARCINOMA
     Dosage: 5 MG, 2X/DAY
     Dates: start: 20200813

REACTIONS (2)
  - Off label use [Unknown]
  - Neoplasm progression [Fatal]

NARRATIVE: CASE EVENT DATE: 20200813
